FAERS Safety Report 7134650-9 (Version None)
Quarter: 2010Q4

REPORT INFORMATION
  Report Type: 
  Country: None (occurrence: None)
  Receive Date: 20101203
  Receipt Date: 20101125
  Transmission Date: 20110411
  Serious: Yes (Other)
  Sender: FDA-Public Use
  Company Number: BR-SANOFI-AVENTIS-2010SA071815

PATIENT
  Age: 79 Year
  Sex: Female

DRUGS (1)
  1. GLYBURIDE [Suspect]

REACTIONS (5)
  - BLOOD GLUCOSE INCREASED [None]
  - HYPERTENSION [None]
  - INFECTION [None]
  - MEMORY IMPAIRMENT [None]
  - PNEUMONIA [None]
